FAERS Safety Report 21139878 (Version 1)
Quarter: 2022Q3

REPORT INFORMATION
  Report Type: Spontaneous
  Country: US (occurrence: US)
  Receive Date: 20220728
  Receipt Date: 20220728
  Transmission Date: 20221027
  Serious: Yes (Death, Life-Threatening)
  Sender: FDA-Public Use
  Company Number: US-MALLINCKRODT-T202203828

PATIENT
  Age: 27 Year
  Sex: Male

DRUGS (1)
  1. INOMAX [Suspect]
     Active Substance: NITRIC OXIDE
     Indication: Acute respiratory distress syndrome
     Dosage: UNK (INHALATION)
     Route: 055

REACTIONS (4)
  - Cardiac arrest [Fatal]
  - Pulseless electrical activity [Unknown]
  - Product use in unapproved indication [Unknown]
  - Product use issue [Unknown]
